FAERS Safety Report 12834506 (Version 3)
Quarter: 2016Q4

REPORT INFORMATION
  Report Type: Spontaneous
  Country: IT (occurrence: IT)
  Receive Date: 20161010
  Receipt Date: 20161020
  Transmission Date: 20170207
  Serious: Yes (Other)
  Sender: FDA-Public Use
  Company Number: IT-PFIZER INC-2016455510

PATIENT
  Age: 36 Year
  Sex: Female
  Weight: 58.5 kg

DRUGS (2)
  1. FLUOROURACIL. [Suspect]
     Active Substance: FLUOROURACIL
     Indication: COLON CANCER
     Dosage: 4000 MG, CYCLIC
     Route: 041
     Dates: start: 20160825, end: 20160908
  2. OXALIPLATIN. [Suspect]
     Active Substance: OXALIPLATIN
     Indication: COLON CANCER
     Dosage: 122 MG, CYCLIC
     Route: 042
     Dates: start: 20160825, end: 20160908

REACTIONS (3)
  - Dysphonia [Recovering/Resolving]
  - Stomatitis [Recovering/Resolving]
  - Pharyngeal inflammation [Recovering/Resolving]

NARRATIVE: CASE EVENT DATE: 20160910
